FAERS Safety Report 26185771 (Version 1)
Quarter: 2025Q4

REPORT INFORMATION
  Report Type: Spontaneous
  Country: US (occurrence: US)
  Receive Date: 20251222
  Receipt Date: 20251222
  Transmission Date: 20260118
  Serious: Yes (Hospitalization, Other)
  Sender: CELLTRION
  Company Number: US-CELLTRION INC.-2025US019699

PATIENT

DRUGS (2)
  1. RITUXIMAB [Suspect]
     Active Substance: RITUXIMAB
     Indication: Anti-neutrophil cytoplasmic antibody positive vasculitis
     Dosage: INDUCTION THERAPY CONSISTING TWO 1000 MG FOR DOSES SEPARATED BY 2 TO 4 WEEKS FOLLOWED BY SINGLE 1000
     Route: 042
  2. AZATHIOPRINE [Concomitant]
     Active Substance: AZATHIOPRINE
     Dosage: FOR }5Y

REACTIONS (4)
  - Infection [Unknown]
  - Infection [Unknown]
  - Neutropenia [Unknown]
  - B-lymphocyte count decreased [Unknown]
